FAERS Safety Report 8502904-7 (Version None)
Quarter: 2012Q3

REPORT INFORMATION
  Report Type: 
  Country: None (occurrence: None)
  Receive Date: 20120711
  Receipt Date: 20120706
  Transmission Date: 20120928
  Serious: Yes (Hospitalization, Other)
  Sender: FDA-Public Use
  Company Number: US-AMGEN-USASP2012042037

PATIENT
  Age: 47 Year
  Sex: Male

DRUGS (1)
  1. EPOGEN [Suspect]
     Indication: HAEMODIALYSIS
     Dosage: UNK

REACTIONS (4)
  - APLASIA PURE RED CELL [None]
  - ASTHENIA [None]
  - HOSPITALISATION [None]
  - HAEMOGLOBIN DECREASED [None]
